FAERS Safety Report 21062055 (Version 2)
Quarter: 2022Q3

REPORT INFORMATION
  Report Type: Spontaneous
  Country: JP (occurrence: JP)
  Receive Date: 20220710
  Receipt Date: 20220713
  Transmission Date: 20221027
  Serious: Yes (Other)
  Sender: FDA-Public Use
  Company Number: JP-SAKK-2022SA267814AA

PATIENT
  Age: 64 Year
  Sex: Male

DRUGS (1)
  1. JEVTANA [Suspect]
     Active Substance: CABAZITAXEL
     Indication: Prostate cancer
     Dosage: 33 MG (20 MG/M2), 1X
     Route: 041
     Dates: start: 20220628, end: 20220628

REACTIONS (3)
  - Ventricular tachycardia [Unknown]
  - Renal impairment [Unknown]
  - Tachycardia [Unknown]

NARRATIVE: CASE EVENT DATE: 20220706
